FAERS Safety Report 15174661 (Version 1)
Quarter: 2018Q3

REPORT INFORMATION
  Report Type: Spontaneous
  Country: NL (occurrence: NL)
  Receive Date: 20180720
  Receipt Date: 20180720
  Transmission Date: 20181010
  Serious: Yes (Hospitalization)
  Sender: FDA-Public Use
  Company Number: NL-TERSERA THERAPEUTICS, LLC-2052493

PATIENT
  Age: 76 Year
  Sex: Male

DRUGS (5)
  1. SIMVASTATIN. [Concomitant]
     Active Substance: SIMVASTATIN
     Route: 065
  2. HISTAMINE [Concomitant]
     Active Substance: HISTAMINE
     Route: 065
  3. ZOLADEX [Suspect]
     Active Substance: GOSERELIN ACETATE
     Indication: PROSTATE CANCER
     Route: 058
     Dates: start: 20180405
  4. OXYCODONE [Concomitant]
     Active Substance: OXYCODONE
     Route: 065
  5. ACETAMINOPHEN. [Concomitant]
     Active Substance: ACETAMINOPHEN
     Route: 065

REACTIONS (1)
  - Arthritis bacterial [Unknown]

NARRATIVE: CASE EVENT DATE: 20180511
